FAERS Safety Report 13116455 (Version 3)
Quarter: 2017Q1

REPORT INFORMATION
  Report Type: Spontaneous
  Country: FR (occurrence: FR)
  Receive Date: 20170116
  Receipt Date: 20170317
  Transmission Date: 20170428
  Serious: Yes (Death, Life-Threatening, Hospitalization, Other)
  Sender: FDA-Public Use
  Company Number: FR-ACCORD-047283

PATIENT
  Age: 67 Year
  Sex: Male

DRUGS (7)
  1. FUNGIZONE [Concomitant]
     Active Substance: AMPHOTERICIN B
  2. SODIUM BICARBONATE. [Concomitant]
     Active Substance: SODIUM BICARBONATE
  3. ACICLOVIR [Concomitant]
     Active Substance: ACYCLOVIR
  4. PARACETAMOL [Concomitant]
     Active Substance: ACETAMINOPHEN
  5. GLICLAZIDE [Concomitant]
     Active Substance: GLICLAZIDE
  6. DOCETAXEL ACCORD [Suspect]
     Active Substance: DOCETAXEL
     Indication: PROSTATE CANCER METASTATIC
     Dosage: STRENGTH: 160 MG, 75 MG/M^2 IN ONE SINGLE INTAKE
     Route: 042
     Dates: start: 20161114, end: 20161114
  7. VOGALENE [Concomitant]
     Active Substance: METOPIMAZINE

REACTIONS (15)
  - Septic shock [Fatal]
  - Pure white cell aplasia [Unknown]
  - Rhabdomyolysis [Unknown]
  - Renal tubular necrosis [Unknown]
  - Neuropathy peripheral [Unknown]
  - Atrial flutter [Unknown]
  - Cardiac arrest [Recovered/Resolved]
  - Metabolic acidosis [Unknown]
  - Hypokalaemia [Unknown]
  - Thrombocytopenia [Unknown]
  - Acute kidney injury [Unknown]
  - Dysphagia [Unknown]
  - Cardiomyopathy [Unknown]
  - Respiratory failure [Unknown]
  - Atrial fibrillation [Unknown]

NARRATIVE: CASE EVENT DATE: 20161120
